FAERS Safety Report 17685778 (Version 3)
Quarter: 2022Q2

REPORT INFORMATION
  Report Type: Report from Study
  Country: US (occurrence: US)
  Receive Date: 20200420
  Receipt Date: 20220513
  Transmission Date: 20220721
  Serious: Yes (Other)
  Sender: FDA-Public Use
  Company Number: US-TEVA-2020-US-1223478

PATIENT
  Age: 52 Year
  Sex: Female
  Weight: 63.6 kg

DRUGS (4)
  1. CLOZAPINE [Suspect]
     Active Substance: CLOZAPINE
     Indication: Schizoaffective disorder
     Dosage: 400 MILLIGRAM DAILY; TAKES 100 MG ONCE IN THE MORNING, 100 MG ONCE IN THE AFTERNOON, 200 MG ONCE AT
     Route: 048
     Dates: start: 20200328
  2. CLOZAPINE [Suspect]
     Active Substance: CLOZAPINE
     Indication: Schizophrenia
  3. PHENOBARBITAL [Concomitant]
     Active Substance: PHENOBARBITAL
     Indication: White blood cell count
  4. LITHIUM [Concomitant]
     Active Substance: LITHIUM
     Indication: White blood cell count

REACTIONS (9)
  - Syncope [Unknown]
  - Dyspepsia [Not Recovered/Not Resolved]
  - Abdominal pain upper [Not Recovered/Not Resolved]
  - Nausea [Not Recovered/Not Resolved]
  - Discomfort [Not Recovered/Not Resolved]
  - Dizziness [Unknown]
  - Heart rate abnormal [Unknown]
  - Feeling abnormal [Unknown]
  - Product substitution issue [Unknown]

NARRATIVE: CASE EVENT DATE: 20200328
